FAERS Safety Report 5148257-6 (Version None)
Quarter: 2006Q4

REPORT INFORMATION
  Report Type: 
  Country: None (occurrence: None)
  Receive Date: 20061106
  Receipt Date: 20061025
  Transmission Date: 20070319
  Serious: Yes (Death)
  Sender: FDA-Public Use
  Company Number: OMPQ-NO-0610S-1465

PATIENT
  Age: 43 Year
  Sex: Female
  Weight: 94 kg

DRUGS (2)
  1. OMNIPAQUE 140 [Suspect]
     Indication: NERVE ROOT COMPRESSION
     Dosage: 20 ML, SINGLE DOSE, I.T.
     Route: 039
     Dates: start: 20061009, end: 20061009
  2. NOVOCAINE-ADRENALINE (NOVOCAINE) [Concomitant]

REACTIONS (5)
  - ANAPHYLACTIC SHOCK [None]
  - CARDIOMYOPATHY [None]
  - DRUG TOXICITY [None]
  - NEPHRITIS INTERSTITIAL [None]
  - PULMONARY EMBOLISM [None]
